FAERS Safety Report 9308189 (Version 1)
Quarter: 2013Q2

REPORT INFORMATION
  Report Type: Spontaneous
  Country: US (occurrence: US)
  Receive Date: 20130524
  Receipt Date: 20130524
  Transmission Date: 20140414
  Serious: Yes (Other)
  Sender: FDA-Public Use
  Company Number: US-TEVA-406772USA

PATIENT
  Sex: Female

DRUGS (4)
  1. LEVOTHYROXINE SODIUM FOR INJECTION,200 MCG/6 ML VIAL + 500 MCG/6 ML VI [Suspect]
     Indication: THYROID DISORDER
     Dosage: 50 MCG, FIVE DAYS A WEEK AND 75MCG FOR TWO DAYS IN WEEKEND
     Dates: start: 2012, end: 20130422
  2. LEVOXYL [Suspect]
  3. LEXAPRO [Interacting]
     Indication: DEPRESSION
  4. AMLODIPINE [Interacting]
     Indication: HYPERTENSION

REACTIONS (5)
  - Urinary tract infection [Unknown]
  - Drug interaction [Unknown]
  - Breath odour [Unknown]
  - Parosmia [Unknown]
  - Malaise [Not Recovered/Not Resolved]
